FAERS Safety Report 5046814-9 (Version None)
Quarter: 2006Q3

REPORT INFORMATION
  Report Type: 
  Country: None (occurrence: None)
  Receive Date: 20060705
  Receipt Date: 20060705
  Transmission Date: 20061208
  Serious: Yes (Other)
  Sender: FDA-Public Use
  Company Number: None

PATIENT
  Age: 66 Year
  Sex: Male

DRUGS (3)
  1. VIAGRA [Suspect]
     Indication: ERECTILE DYSFUNCTION
     Dosage: 10MG PRN PO
     Route: 048
     Dates: start: 20051105, end: 20060124
  2. LEVITRA [Suspect]
  3. MYLANTA [Concomitant]

REACTIONS (1)
  - NASAL CONGESTION [None]
